FAERS Safety Report 22235070 (Version 1)
Quarter: 2023Q2

REPORT INFORMATION
  Report Type: Spontaneous
  Country: US (occurrence: None)
  Receive Date: 20230419
  Receipt Date: 20230419
  Transmission Date: 20230722
  Serious: No
  Sender: FDA-Public Use
  Company Number: None

PATIENT
  Age: 30 Year
  Sex: Female
  Weight: 45 kg

DRUGS (1)
  1. TYRVAYA [Suspect]
     Active Substance: VARENICLINE TARTRATE
     Indication: Dry eye
     Dosage: 0.03 MG TWICE A DAY NASAL
     Route: 045

REACTIONS (2)
  - Product taste abnormal [None]
  - Oropharyngeal discomfort [None]

NARRATIVE: CASE EVENT DATE: 20230419
